FAERS Safety Report 9199775 (Version 1)
Quarter: 2013Q1

REPORT INFORMATION
  Report Type: Spontaneous
  Country: US (occurrence: None)
  Receive Date: 20130328
  Receipt Date: 20130328
  Transmission Date: 20140127
  Serious: No
  Sender: FDA-Public Use
  Company Number: None

PATIENT
  Age: 66 Year
  Sex: Female
  Weight: 70.76 kg

DRUGS (1)
  1. AVELOX [Suspect]
     Indication: COUGH
     Route: 048
     Dates: start: 20130225, end: 20130304

REACTIONS (1)
  - Tendon rupture [None]
